FAERS Safety Report 20839397 (Version 1)
Quarter: 2022Q2

REPORT INFORMATION
  Report Type: Spontaneous
  Country: JP (occurrence: JP)
  Receive Date: 20220517
  Receipt Date: 20220517
  Transmission Date: 20220721
  Serious: Yes (Death, Hospitalization, Other)
  Sender: FDA-Public Use
  Company Number: JP-LUPIN PHARMACEUTICALS INC.-2022-07068

PATIENT
  Age: 46 Year
  Sex: Male

DRUGS (6)
  1. METHYLPREDNISOLONE [Suspect]
     Active Substance: METHYLPREDNISOLONE
     Indication: Immunosuppressant drug therapy
     Dosage: UNK
     Route: 065
  2. PREDNISOLONE [Suspect]
     Active Substance: PREDNISOLONE
     Indication: Immunosuppressant drug therapy
     Dosage: UNK
     Route: 065
  3. TACROLIMUS [Suspect]
     Active Substance: TACROLIMUS
     Indication: Immunosuppressant drug therapy
     Dosage: UNK
     Route: 065
  4. CYCLOPHOSPHAMIDE [Suspect]
     Active Substance: CYCLOPHOSPHAMIDE
     Indication: Immunosuppressant drug therapy
     Dosage: UNK
     Route: 065
  5. RITUXIMAB [Suspect]
     Active Substance: RITUXIMAB
     Indication: Immunosuppressant drug therapy
     Dosage: UNK
     Route: 065
  6. TOFACITINIB [Suspect]
     Active Substance: TOFACITINIB
     Indication: Immunosuppressant drug therapy
     Dosage: UNK
     Route: 065

REACTIONS (8)
  - Gastrointestinal haemorrhage [Fatal]
  - Herpes oesophagitis [Unknown]
  - Necrosis [Unknown]
  - Haematemesis [Unknown]
  - Oedema mucosal [Unknown]
  - Haematoma [Unknown]
  - Drug ineffective for unapproved indication [Unknown]
  - Off label use [Unknown]
